FAERS Safety Report 18771305 (Version 1)
Quarter: 2021Q1

REPORT INFORMATION
  Report Type: Spontaneous
  Country: US (occurrence: US)
  Receive Date: 20210121
  Receipt Date: 20210121
  Transmission Date: 20210419
  Serious: Yes (Other)
  Sender: FDA-Public Use
  Company Number: US-TEVA-2021-US-1870038

PATIENT
  Age: 65 Year
  Sex: Male

DRUGS (2)
  1. NIVOLUMAB [Suspect]
     Active Substance: NIVOLUMAB
     Indication: DEDIFFERENTIATED LIPOSARCOMA
     Route: 065
     Dates: start: 20180906
  2. CIPROFLOXACIN. [Suspect]
     Active Substance: CIPROFLOXACIN
     Indication: INFECTION
     Route: 065
     Dates: start: 2018

REACTIONS (4)
  - Drug hypersensitivity [Unknown]
  - Glomerulonephritis rapidly progressive [Recovering/Resolving]
  - Infection [Unknown]
  - Glomerulonephritis [Recovering/Resolving]

NARRATIVE: CASE EVENT DATE: 2018
